FAERS Safety Report 9214654 (Version 5)
Quarter: 2014Q3

REPORT INFORMATION
  Report Type: Spontaneous
  Country: US (occurrence: US)
  Receive Date: 20130405
  Receipt Date: 20140826
  Transmission Date: 20150326
  Serious: Yes (Hospitalization, Disabling, Other)
  Sender: FDA-Public Use
  Company Number: US-009507513-1304USA001966

PATIENT
  Sex: Male
  Weight: 74.83 kg

DRUGS (2)
  1. PROSCAR [Suspect]
     Active Substance: FINASTERIDE
     Indication: ANDROGENETIC ALOPECIA
     Dosage: 5 MG, UNK
     Route: 048
     Dates: start: 200403, end: 200503
  2. PROSCAR [Suspect]
     Active Substance: FINASTERIDE
     Dosage: 1/4 OF 5 MG TAB, QD
     Route: 048
     Dates: start: 200403, end: 200503

REACTIONS (14)
  - Ejaculation disorder [Not Recovered/Not Resolved]
  - Drug administration error [Unknown]
  - Wrong technique in drug usage process [Unknown]
  - Orgasm abnormal [Not Recovered/Not Resolved]
  - Erectile dysfunction [Not Recovered/Not Resolved]
  - Nocturia [Unknown]
  - Libido decreased [Not Recovered/Not Resolved]
  - Enuresis [Unknown]
  - Adjustment disorder with mixed anxiety and depressed mood [Recovering/Resolving]
  - Organ donor [Unknown]
  - Anxiety [Not Recovered/Not Resolved]
  - Pancreatitis [Unknown]
  - Emotional distress [Not Recovered/Not Resolved]
  - Scoliosis [Unknown]

NARRATIVE: CASE EVENT DATE: 200403
